FAERS Safety Report 5066872-5 (Version None)
Quarter: 2006Q3

REPORT INFORMATION
  Report Type: 
  Country: None (occurrence: None)
  Receive Date: 20060726
  Receipt Date: 20060713
  Transmission Date: 20061208
  Serious: Yes (Life-Threatening)
  Sender: FDA-Public Use
  Company Number: 2006087263

PATIENT
  Age: 45 Year
  Sex: Male
  Weight: 80 kg

DRUGS (11)
  1. DIFLUCAN [Suspect]
     Indication: FUNGAL INFECTION
     Dosage: 400 MG (200 MG, 2 IN 1 D), INTRAVENOUS
     Route: 042
     Dates: start: 20060710, end: 20060710
  2. CLARITHROMYCIN [Suspect]
     Indication: PNEUMONIA LEGIONELLA
     Dosage: 1000 MG (500 MG, 2 IN 1  D), INTRAVENOUS
     Route: 042
     Dates: start: 20060707
  3. CORDARONE [Concomitant]
  4. CIPROFLOXACIN [Concomitant]
  5. TAZOCIN (PIPERACILLIN SODIUM TAZOBACTAM SODIUM) [Concomitant]
  6. HEPARIN [Concomitant]
  7. NOREPINEPHRINE BITARTRATE [Concomitant]
  8. DOBUTEX (DOBUTAMINE HYDROCHLORIDE) [Concomitant]
  9. DORMICUM FOR INJECTION (MIDAZOLAM HYDROCHLORIDE) [Concomitant]
  10. FENTANYL [Concomitant]
  11. PANTOLOC   BYK   (PANTOPRAZOLE SODUM) [Concomitant]

REACTIONS (3)
  - CARDIAC ARREST [None]
  - DRUG INTERACTION [None]
  - VENTRICULAR FIBRILLATION [None]
